FAERS Safety Report 4579982-3 (Version None)
Quarter: 2005Q1

REPORT INFORMATION
  Report Type: 
  Country: None (occurrence: None)
  Receive Date: 20050214
  Receipt Date: 20041006
  Transmission Date: 20050727
  Serious: Yes (Hospitalization)
  Sender: FDA-Public Use
  Company Number: DE-ROCHE-382335

PATIENT
  Age: 66 Year
  Sex: Male

DRUGS (11)
  1. RIBAVIRIN [Suspect]
     Indication: HEPATITIS C VIRUS
     Route: 048
     Dates: start: 20040805, end: 20040930
  2. PEG-INTERFERON ALFA 2A (RO 25-8310) [Suspect]
     Indication: HEPATITIS C VIRUS
     Route: 058
     Dates: start: 20040805
  3. AMANTADINE HCL [Suspect]
     Indication: HEPATITIS C VIRUS
     Route: 048
     Dates: start: 20040722
  4. NOVORAPID [Concomitant]
     Dosage: DOSE 4-3-10 IE PER DAY.
     Route: 058
     Dates: start: 20020615
  5. L-THYROXINE [Concomitant]
     Dosage: REPORTED AS L-THYROX.
     Route: 048
     Dates: start: 19840615
  6. ASS 100 [Concomitant]
     Route: 048
  7. UNKNOWN DRUG [Concomitant]
     Dosage: REPORTED AS PROCRASC COMP.
     Route: 048
     Dates: start: 20040812
  8. UNKNOWN DRUG [Concomitant]
     Dosage: REPORTED AS GLIS.
     Route: 048
     Dates: start: 20020615
  9. UNIMAX [Concomitant]
     Indication: HYPERTONIA
  10. INSULIN NOVO [Concomitant]
  11. GLIBENCLAMID-RATIOPHARM [Concomitant]

REACTIONS (3)
  - ANGINA PECTORIS [None]
  - CORONARY ARTERY DISEASE [None]
  - EXERCISE ELECTROCARDIOGRAM ABNORMAL [None]
